FAERS Safety Report 10671087 (Version 1)
Quarter: 2014Q4

REPORT INFORMATION
  Report Type: Spontaneous
  Country: US (occurrence: US)
  Receive Date: 20141223
  Receipt Date: 20141223
  Transmission Date: 20150529
  Serious: No
  Sender: FDA-Public Use
  Company Number: US-BAYER-2014-188176

PATIENT
  Sex: Female

DRUGS (3)
  1. ALEVE [Suspect]
     Active Substance: NAPROXEN SODIUM
     Indication: INFLAMMATION
  2. ALEVE [Suspect]
     Active Substance: NAPROXEN SODIUM
     Indication: GOUT
     Dosage: UNK, QD
     Route: 048
     Dates: start: 201412
  3. ALEVE [Suspect]
     Active Substance: NAPROXEN SODIUM
     Indication: ARTHRALGIA

REACTIONS (2)
  - Incorrect drug administration duration [Unknown]
  - Medication error [Unknown]

NARRATIVE: CASE EVENT DATE: 201412
